FAERS Safety Report 13591268 (Version 1)
Quarter: 2017Q2

REPORT INFORMATION
  Report Type: Spontaneous
  Country: US (occurrence: US)
  Receive Date: 20170529
  Receipt Date: 20170529
  Transmission Date: 20170830
  Serious: No
  Sender: FDA-Public Use
  Company Number: US-PFIZER INC-2017159092

PATIENT
  Age: 15 Year
  Sex: Male

DRUGS (9)
  1. GENOTROPIN [Suspect]
     Active Substance: SOMATROPIN
     Indication: HYPOPITUITARISM
     Dosage: 1.1 MG, DAILY
     Route: 058
  2. CLONIDINE. [Concomitant]
     Active Substance: CLONIDINE
     Dosage: 100 UG, UNK
     Route: 048
  3. PREVACID [Concomitant]
     Active Substance: LANSOPRAZOLE
     Dosage: UNK
     Route: 048
  4. LANSOPRAZOLE. [Concomitant]
     Active Substance: LANSOPRAZOLE
     Dosage: UNK
  5. ARGININE HCL [Concomitant]
     Active Substance: ARGININE HYDROCHLORIDE
     Dosage: UNK
     Route: 042
  6. GLUCOGEN [Concomitant]
     Dosage: UNK
  7. GENOTROPIN [Suspect]
     Active Substance: SOMATROPIN
     Indication: GROWTH HORMONE DEFICIENCY
     Dosage: 1.4 MG, DAILY
     Route: 058
     Dates: start: 201105
  8. GENOTROPIN [Suspect]
     Active Substance: SOMATROPIN
     Dosage: 1 MG, DAILY
  9. MULTIHANCE [Concomitant]
     Active Substance: GADOBENATE DIMEGLUMINE
     Indication: DWARFISM
     Dosage: 4 ML, UNK
     Route: 042

REACTIONS (6)
  - Scoliosis [Unknown]
  - Lacrimation increased [Unknown]
  - Photophobia [Unknown]
  - Wrist fracture [Unknown]
  - Headache [Unknown]
  - Acne [Unknown]
